FAERS Safety Report 6665594-4 (Version None)
Quarter: 2010Q2

REPORT INFORMATION
  Report Type: 
  Country: None (occurrence: None)
  Receive Date: 20100402
  Receipt Date: 20100325
  Transmission Date: 20101027
  Serious: Yes (Other)
  Sender: FDA-Public Use
  Company Number: JP-PFIZER INC-2010024505

PATIENT
  Age: 48 Year
  Sex: Female

DRUGS (3)
  1. LIPITOR [Suspect]
     Dosage: 5 MG, DAILY
     Route: 048
     Dates: end: 20091021
  2. VALSARTAN [Suspect]
     Dosage: 80 MG, DAILY
     Route: 048
  3. ALLOPURINOL [Suspect]
     Dosage: 50 MG, DAILY
     Route: 048

REACTIONS (1)
  - LENTIGO [None]
